FAERS Safety Report 6017305-3 (Version None)
Quarter: 2008Q4

REPORT INFORMATION
  Report Type: 
  Country: None (occurrence: None)
  Receive Date: 20081219
  Receipt Date: 20081204
  Transmission Date: 20090506
  Serious: Yes (Other)
  Sender: FDA-Public Use
  Company Number: CIP08002590

PATIENT
  Age: 70 Year
  Sex: Female

DRUGS (1)
  1. RISEDRONATE SODIUM [Suspect]
     Indication: OSTEOPOROSIS
     Dosage: 17.5 MG ONCE WEEKLY, ORAL
     Route: 048
     Dates: start: 20080601

REACTIONS (3)
  - BONE DISORDER [None]
  - FEMORAL NECK FRACTURE [None]
  - PATHOLOGICAL FRACTURE [None]
